FAERS Safety Report 12109876 (Version 1)
Quarter: 2016Q1

REPORT INFORMATION
  Report Type: Spontaneous
  Country: None (occurrence: GB)
  Receive Date: 20160224
  Receipt Date: 20160224
  Transmission Date: 20160526
  Serious: Yes (Other)
  Sender: FDA-Public Use
  Company Number: GB-B. BRAUN MEDICAL INC.-1048329

PATIENT
  Age: 72 Year
  Sex: Female
  Weight: 82.5 kg

DRUGS (6)
  1. CLOPIDOGREL [Concomitant]
     Active Substance: CLOPIDOGREL BISULFATE
  2. ATENOLOL. [Concomitant]
     Active Substance: ATENOLOL
  3. MEBEVERINE [Concomitant]
     Active Substance: MEBEVERINE
  4. ANTIDEPRESSANTS NOS [Concomitant]
     Active Substance: UNSPECIFIED INGREDIENT
  5. METRONIDAZOLE. [Suspect]
     Active Substance: METRONIDAZOLE
     Indication: DIARRHOEA
     Route: 042
  6. SPIRONOLACTONE. [Concomitant]
     Active Substance: SPIRONOLACTONE

REACTIONS (7)
  - Dizziness [None]
  - Blister [None]
  - Hypersensitivity [None]
  - Arthralgia [None]
  - Headache [None]
  - Swelling [None]
  - Herpes zoster [None]
